FAERS Safety Report 14624578 (Version 1)
Quarter: 2018Q1

REPORT INFORMATION
  Report Type: Spontaneous
  Country: FR (occurrence: FR)
  Receive Date: 20180312
  Receipt Date: 20180312
  Transmission Date: 20180509
  Serious: Yes (Hospitalization)
  Sender: FDA-Public Use
  Company Number: PHHY2017FR201583

PATIENT
  Age: 76 Year
  Sex: Female
  Weight: 57 kg

DRUGS (5)
  1. ACTISKENAN [Concomitant]
     Active Substance: MORPHINE SULFATE
     Indication: BONE PAIN
     Dosage: UNK (DOSAGE FORM: UNSPECIFIED)
     Route: 048
  2. FEMARA [Suspect]
     Active Substance: LETROZOLE
     Indication: BREAST CANCER
     Dosage: UNK (DOSAGE FORM: UNSPECIFIED)
     Route: 048
  3. PALBOCICLIB [Suspect]
     Active Substance: PALBOCICLIB
     Indication: BREAST CANCER METASTATIC
     Dosage: 125 MG, UNK (DOSAGE FORM: UNSPECIFIED)
     Route: 048
  4. DUROGESIC [Suspect]
     Active Substance: FENTANYL
     Indication: BONE PAIN
     Dosage: UNK (DOSAGE FORM: UNSPECIFIED)
     Route: 065
  5. SKENAN [Concomitant]
     Active Substance: MORPHINE SULFATE
     Indication: BONE PAIN
     Dosage: UNK (DOSAGE FORM: UNSPECIFIED)
     Route: 048

REACTIONS (2)
  - General physical health deterioration [Recovered/Resolved with Sequelae]
  - Overdose [Unknown]

NARRATIVE: CASE EVENT DATE: 20171130
